FAERS Safety Report 16283145 (Version 1)
Quarter: 2019Q2

REPORT INFORMATION
  Report Type: Spontaneous
  Country: US (occurrence: US)
  Receive Date: 20190507
  Receipt Date: 20190507
  Transmission Date: 20190711
  Serious: Yes (Other)
  Sender: FDA-Public Use
  Company Number: US-ASTRAZENECA-2019SE59772

PATIENT
  Sex: Female

DRUGS (30)
  1. PRILOSEC [Suspect]
     Active Substance: OMEPRAZOLE MAGNESIUM
     Route: 048
     Dates: start: 20030626
  2. NEURONTIN [Concomitant]
     Active Substance: GABAPENTIN
  3. ALBUTEROL. [Concomitant]
     Active Substance: ALBUTEROL
  4. LISINOPRIL. [Concomitant]
     Active Substance: LISINOPRIL
  5. METFORMIN [Concomitant]
     Active Substance: METFORMIN HYDROCHLORIDE
  6. LEVAQUIN [Concomitant]
     Active Substance: LEVOFLOXACIN
  7. PRILOSEC [Suspect]
     Active Substance: OMEPRAZOLE MAGNESIUM
     Route: 048
     Dates: start: 2003, end: 2018
  8. QUININE SULFATE. [Concomitant]
     Active Substance: QUININE SULFATE
  9. ARANESP [Concomitant]
     Active Substance: DARBEPOETIN ALFA
  10. BIAXIN [Concomitant]
     Active Substance: CLARITHROMYCIN
  11. DIOVAN [Concomitant]
     Active Substance: VALSARTAN
  12. ERYTHROMYCIN. [Concomitant]
     Active Substance: ERYTHROMYCIN
  13. CLINDAMYCIN. [Concomitant]
     Active Substance: CLINDAMYCIN
  14. VICODIN [Concomitant]
     Active Substance: ACETAMINOPHEN\HYDROCODONE BITARTRATE
  15. DEXILANT [Concomitant]
     Active Substance: DEXLANSOPRAZOLE
     Route: 065
     Dates: start: 2003, end: 2018
  16. FUROSEMIDE. [Concomitant]
     Active Substance: FUROSEMIDE
  17. ZETIA [Concomitant]
     Active Substance: EZETIMIBE
  18. TRICOR [Concomitant]
     Active Substance: FENOFIBRATE
  19. FEXOFENADINE [Concomitant]
     Active Substance: FEXOFENADINE\FEXOFENADINE HYDROCHLORIDE
  20. NEXIUM [Suspect]
     Active Substance: ESOMEPRAZOLE MAGNESIUM
     Route: 048
     Dates: start: 2003, end: 2018
  21. DITROPAN [Concomitant]
     Active Substance: OXYBUTYNIN CHLORIDE
  22. BIAXIN [Concomitant]
     Active Substance: CLARITHROMYCIN
  23. TANDEM [Concomitant]
     Active Substance: FERROUS ASPARTO GLYCINATE\FERROUS FUMARATE
  24. TRAMADOL. [Concomitant]
     Active Substance: TRAMADOL
  25. CLINDAMYCIN. [Concomitant]
     Active Substance: CLINDAMYCIN
  26. ALLEGRA [Concomitant]
     Active Substance: FEXOFENADINE HYDROCHLORIDE
  27. RHINOCORT [Concomitant]
     Active Substance: BUDESONIDE
  28. ADVAIR HFA [Concomitant]
     Active Substance: FLUTICASONE PROPIONATE\SALMETEROL XINAFOATE
  29. ASPIRIN. [Concomitant]
     Active Substance: ASPIRIN
  30. FEXOFENADINE [Concomitant]
     Active Substance: FEXOFENADINE\FEXOFENADINE HYDROCHLORIDE

REACTIONS (3)
  - Chronic kidney disease [Unknown]
  - Nephrogenic anaemia [Unknown]
  - Renal failure [Unknown]
